FAERS Safety Report 4655318-4 (Version None)
Quarter: 2005Q2

REPORT INFORMATION
  Report Type: 
  Country: None (occurrence: None)
  Receive Date: 20050505
  Receipt Date: 20050414
  Transmission Date: 20051028
  Serious: Yes (Hospitalization)
  Sender: FDA-Public Use
  Company Number: USA050495657

PATIENT
  Age: 58 Year
  Sex: Female

DRUGS (3)
  1. GEMZAR [Suspect]
     Indication: BREAST CANCER METASTATIC
     Dosage: 1000 MG/M2 OTHER
  2. GEMZAR [Suspect]
     Indication: METASTASES TO BONE
     Dosage: 1000 MG/M2 OTHER
  3. GEMZAR [Suspect]
     Indication: METASTASES TO PLEURA
     Dosage: 1000 MG/M2 OTHER

REACTIONS (2)
  - DYSPNOEA [None]
  - INTERSTITIAL LUNG DISEASE [None]
